FAERS Safety Report 6586658-X (Version None)
Quarter: 2010Q1

REPORT INFORMATION
  Report Type: 
  Country: None (occurrence: None)
  Receive Date: 20100217
  Receipt Date: 20090721
  Transmission Date: 20100710
  Serious: Yes (Life-Threatening, Hospitalization)
  Sender: FDA-Public Use
  Company Number: US-ALLERGAN-0907419US

PATIENT
  Age: 76 Year
  Sex: Female
  Weight: 57.596 kg

DRUGS (5)
  1. BOTOX [Suspect]
     Indication: TORTICOLLIS
     Dosage: 100 UNITS, SINGLE
     Route: 030
     Dates: start: 20090514, end: 20090514
  2. BOTOX [Suspect]
     Dosage: 200 UNITS, SINGLE
     Route: 030
     Dates: start: 20090318, end: 20090318
  3. LORAZEPAM [Concomitant]
     Indication: ANXIETY
  4. CALCIUM SUPPLEMENT [Concomitant]
  5. BENICAR [Concomitant]
     Indication: HYPERTENSION

REACTIONS (1)
  - DYSPHAGIA [None]
